FAERS Safety Report 20561064 (Version 3)
Quarter: 2023Q1

REPORT INFORMATION
  Report Type: Spontaneous
  Country: US (occurrence: US)
  Receive Date: 20220307
  Receipt Date: 20230222
  Transmission Date: 20230417
  Serious: Yes (Other)
  Sender: FDA-Public Use
  Company Number: US-PFIZER INC-202200356850

PATIENT
  Age: 74 Year
  Sex: Female

DRUGS (1)
  1. XELJANZ XR [Suspect]
     Active Substance: TOFACITINIB CITRATE
     Dosage: 11 MG, DAILY

REACTIONS (7)
  - Shoulder operation [Unknown]
  - Fall [Unknown]
  - Wound dehiscence [Unknown]
  - Postoperative wound complication [Unknown]
  - Knee operation [Unknown]
  - COVID-19 [Unknown]
  - Herpes zoster [Unknown]
